FAERS Safety Report 5684913-9 (Version None)
Quarter: 2008Q1

REPORT INFORMATION
  Report Type: 
  Country: None (occurrence: None)
  Receive Date: 20080328
  Receipt Date: 20071211
  Transmission Date: 20080703
  Serious: Yes (Life-Threatening, Hospitalization)
  Sender: FDA-Public Use
  Company Number: US-BRISTOL-MYERS SQUIBB COMPANY-14011233

PATIENT
  Sex: Male
  Weight: 83 kg

DRUGS (1)
  1. ERBITUX [Suspect]
     Indication: COLON CANCER METASTATIC
     Dosage: SINGLE DOSE ADMINISTERED. APPROX 12ML-10ML IN TUBING, 2ML TO PT. LOT 07C00243A EXP DATE 31-JUL-2010
     Route: 041

REACTIONS (1)
  - UNRESPONSIVE TO STIMULI [None]
